FAERS Safety Report 21946717 (Version 1)
Quarter: 2023Q1

REPORT INFORMATION
  Report Type: Spontaneous
  Country: US (occurrence: US)
  Receive Date: 20230202
  Receipt Date: 20230202
  Transmission Date: 20230417
  Serious: No
  Sender: FDA-Public Use
  Company Number: US-INCYTE CORPORATION-2022IN010719

PATIENT

DRUGS (1)
  1. OPZELURA [Suspect]
     Active Substance: RUXOLITINIB PHOSPHATE
     Indication: Vitiligo
     Dosage: 1.5 PERCENT, BID
     Route: 065
     Dates: start: 20220826

REACTIONS (3)
  - Skin hyperpigmentation [Unknown]
  - Rash papular [Unknown]
  - Pruritus [Unknown]
